FAERS Safety Report 23897045 (Version 3)
Quarter: 2024Q2

REPORT INFORMATION
  Report Type: Report from Study
  Country: US (occurrence: US)
  Receive Date: 20240524
  Receipt Date: 20240625
  Transmission Date: 20240716
  Serious: Yes (Hospitalization, Other)
  Sender: FDA-Public Use
  Company Number: US-BAYER-2024A051211

PATIENT
  Age: 44 Year
  Sex: Female
  Weight: 117.91 kg

DRUGS (14)
  1. ADEMPAS [Suspect]
     Active Substance: RIOCIGUAT
     Indication: Pulmonary arterial hypertension
     Dosage: UNK
     Dates: start: 20230927
  2. ADEMPAS [Suspect]
     Active Substance: RIOCIGUAT
     Indication: Pulmonary arterial hypertension
     Dosage: 2.5 MG, TID
     Route: 048
  3. ADEMPAS [Suspect]
     Active Substance: RIOCIGUAT
     Indication: Pulmonary arterial hypertension
     Dosage: UNK
  4. ADEMPAS [Suspect]
     Active Substance: RIOCIGUAT
     Indication: Pulmonary arterial hypertension
     Dosage: 2.5 MG, TID
     Route: 048
     Dates: start: 20230927
  5. WARFARIN SODIUM [Concomitant]
     Active Substance: WARFARIN SODIUM
  6. POTASSIUM [Concomitant]
     Active Substance: POTASSIUM
  7. ALBUTEROL SULFATE [Concomitant]
     Active Substance: ALBUTEROL SULFATE
  8. LIPITOR [Concomitant]
     Active Substance: ATORVASTATIN CALCIUM
  9. CALCIUM\VITAMIN D [Concomitant]
     Active Substance: CALCIUM\VITAMIN D
  10. CALCIUM CARBONATE [Concomitant]
     Active Substance: CALCIUM CARBONATE
  11. FERROUS SULFATE [Concomitant]
     Active Substance: FERROUS SULFATE
  12. METFORMIN HYDROCHLORIDE [Concomitant]
     Active Substance: METFORMIN HYDROCHLORIDE
  13. TORSEMIDE [Concomitant]
     Active Substance: TORSEMIDE
  14. ASPIRIN [Concomitant]
     Active Substance: ASPIRIN

REACTIONS (27)
  - Hospitalisation [None]
  - Medical procedure [None]
  - Hospitalisation [None]
  - Nasopharyngitis [None]
  - Productive cough [None]
  - Haemoptysis [None]
  - Blood iron decreased [None]
  - Pyrexia [None]
  - Skin warm [None]
  - Dizziness [None]
  - Influenza [Recovering/Resolving]
  - Dizziness [None]
  - Weight decreased [None]
  - Oedema peripheral [None]
  - Pain [None]
  - Muscle spasms [None]
  - Epistaxis [None]
  - Anaemia [None]
  - Illness [None]
  - Oedema [None]
  - Anticoagulation drug level abnormal [None]
  - Stress [None]
  - Insomnia [None]
  - Palpitations [None]
  - Cough [None]
  - Wheezing [None]
  - Adverse event [None]

NARRATIVE: CASE EVENT DATE: 20240603
